FAERS Safety Report 26073326 (Version 1)
Quarter: 2025Q4

REPORT INFORMATION
  Report Type: Spontaneous
  Country: US (occurrence: US)
  Receive Date: 20251121
  Receipt Date: 20251121
  Transmission Date: 20260118
  Serious: No
  Sender: OTSUKA
  Company Number: US-MMM-Otsuka-EOCBNM0J

PATIENT
  Age: 62 Year
  Sex: Male
  Weight: 78.91 kg

DRUGS (2)
  1. NUEDEXTA [Suspect]
     Active Substance: DEXTROMETHORPHAN HYDROBROMIDE\QUINIDINE SULFATE
     Indication: Affect lability
     Dosage: 10 MG, BID
     Route: 065
     Dates: start: 2023, end: 202410
  2. NUEDEXTA [Suspect]
     Active Substance: DEXTROMETHORPHAN HYDROBROMIDE\QUINIDINE SULFATE
     Indication: Ataxia

REACTIONS (2)
  - Therapy cessation [Unknown]
  - Inability to afford medication [Unknown]

NARRATIVE: CASE EVENT DATE: 20241001
